FAERS Safety Report 7321702-3 (Version None)
Quarter: 2011Q1

REPORT INFORMATION
  Report Type: 
  Country: None (occurrence: None)
  Receive Date: 20110228
  Receipt Date: 20100712
  Transmission Date: 20110831
  Serious: No
  Sender: FDA-Public Use
  Company Number: US-PFIZER INC-2010069563

PATIENT
  Age: 33 Year
  Sex: Female

DRUGS (3)
  1. GEODON [Suspect]
     Indication: HALLUCINATION, VISUAL
     Dosage: 240 MG, 1X/DAY
     Route: 048
     Dates: end: 20100527
  2. GEODON [Suspect]
     Indication: SCHIZOAFFECTIVE DISORDER BIPOLAR TYPE
  3. GEODON [Suspect]
     Indication: MAJOR DEPRESSION

REACTIONS (1)
  - SLEEP DISORDER [None]
